FAERS Safety Report 15532068 (Version 2)
Quarter: 2018Q4

REPORT INFORMATION
  Report Type: Report from Study
  Country: None (occurrence: US)
  Receive Date: 20181019
  Receipt Date: 20181025
  Transmission Date: 20190205
  Serious: Yes (Hospitalization)
  Sender: FDA-Public Use
  Company Number: US-ABBVIE-18K-163-2521498-00

PATIENT
  Sex: Female
  Weight: 62.65 kg

DRUGS (1)
  1. HUMIRA [Suspect]
     Active Substance: ADALIMUMAB
     Indication: CROHN^S DISEASE
     Route: 058
     Dates: start: 2015

REACTIONS (11)
  - Intestinal obstruction [Recovered/Resolved]
  - Tendon injury [Unknown]
  - Abdominal distension [Recovered/Resolved]
  - Tendonitis [Unknown]
  - Abdominal distension [Recovered/Resolved]
  - Intentional product misuse [Not Recovered/Not Resolved]
  - Intestinal obstruction [Recovered/Resolved]
  - Colitis [Recovering/Resolving]
  - Gastrointestinal obstruction [Unknown]
  - Crohn^s disease [Unknown]
  - Crohn^s disease [Recovered/Resolved]

NARRATIVE: CASE EVENT DATE: 2016
